FAERS Safety Report 4294988-X (Version None)
Quarter: 2004Q1

REPORT INFORMATION
  Report Type: 
  Country: None (occurrence: None)
  Receive Date: 20040216
  Receipt Date: 20040106
  Transmission Date: 20041129
  Serious: Yes (Life-Threatening, Other)
  Sender: FDA-Public Use
  Company Number: 200410009JP

PATIENT
  Age: 54 Year
  Sex: Female
  Weight: 50 kg

DRUGS (24)
  1. ARAVA [Suspect]
     Indication: RHEUMATOID ARTHRITIS
     Route: 048
     Dates: start: 20031222, end: 20040105
  2. PREDONINE [Concomitant]
     Indication: RHEUMATOID ARTHRITIS
     Route: 048
     Dates: end: 20040105
  3. INFREE S [Concomitant]
     Indication: RHEUMATOID ARTHRITIS
     Route: 048
     Dates: end: 20040105
  4. MINOMYCIN [Concomitant]
     Route: 048
     Dates: end: 20040105
  5. RHEUMATREX [Concomitant]
     Indication: RHEUMATOID ARTHRITIS
     Dosage: DOSE: 8MG/WEEK
     Route: 048
     Dates: end: 20040105
  6. FOLIAMIN [Concomitant]
     Dosage: DOSE: 5MG/WEEK
     Route: 048
     Dates: end: 20040105
  7. VOLTAREN SUPPOSITORIEN [Concomitant]
     Indication: RHEUMATOID ARTHRITIS
     Route: 054
     Dates: end: 20040105
  8. MAGNESIUM OXIDE [Concomitant]
     Indication: CONSTIPATION
     Route: 048
     Dates: start: 20040113, end: 20040129
  9. MYSLEE [Concomitant]
     Indication: INSOMNIA
     Route: 048
     Dates: start: 20040113
  10. FOSMICIN [Concomitant]
     Route: 042
     Dates: start: 20040105, end: 20040119
  11. CEFOTIAM HYDROCHLORIDE [Concomitant]
     Indication: PYREXIA
     Route: 042
     Dates: start: 20040106, end: 20040110
  12. CEFMETAZON [Concomitant]
     Indication: PYREXIA
     Route: 042
     Dates: start: 20040111, end: 20040113
  13. KAKODIN [Concomitant]
     Indication: SHOCK
     Route: 042
     Dates: start: 20040105, end: 20040118
  14. PREDONINE [Concomitant]
     Route: 042
     Dates: start: 20040106, end: 20040122
  15. PHYSIO [Concomitant]
     Indication: ELECTROLYTE SUBSTITUTION THERAPY
     Route: 041
     Dates: start: 20040105, end: 20040106
  16. PHYSIO [Concomitant]
     Indication: FLUID REPLACEMENT
     Route: 041
     Dates: start: 20040105, end: 20040106
  17. AMINOTRIPA 1 [Concomitant]
     Route: 041
     Dates: start: 20040107, end: 20040203
  18. MULTIVITAMINS, PLAIN [Concomitant]
     Route: 041
     Dates: start: 20040107, end: 20040203
  19. ELEMENMIC [Concomitant]
     Dosage: DOSE: 1A
     Route: 041
     Dates: start: 20040107, end: 20040203
  20. ELIETEN [Concomitant]
     Indication: VOMITING
     Route: 041
     Dates: start: 20040106, end: 20040113
  21. ASPARA K [Concomitant]
     Indication: HYPOKALAEMIA
     Dosage: DOSE: 1A
     Route: 041
     Dates: start: 20040107, end: 20040109
  22. ALTAT [Concomitant]
     Indication: GASTRIC ULCER
     Dosage: DOSE: 2A
     Route: 041
     Dates: start: 20040106, end: 20040203
  23. SOLCOSERYL [Concomitant]
     Indication: GASTRIC ULCER
     Route: 041
     Dates: start: 20040105, end: 20040203
  24. HUMULIN R [Concomitant]
     Indication: HYPOGLYCAEMIA
     Route: 041
     Dates: start: 20040107, end: 20040203

REACTIONS (23)
  - ALANINE AMINOTRANSFERASE INCREASED [None]
  - ASPARTATE AMINOTRANSFERASE INCREASED [None]
  - AUTOIMMUNE HEPATITIS [None]
  - BLOOD ALKALINE PHOSPHATASE INCREASED [None]
  - BLOOD BILIRUBIN INCREASED [None]
  - BLOOD LACTATE DEHYDROGENASE INCREASED [None]
  - DISSEMINATED INTRAVASCULAR COAGULATION [None]
  - EOSINOPHIL PERCENTAGE INCREASED [None]
  - GAMMA-GLUTAMYLTRANSFERASE INCREASED [None]
  - HAEMOGLOBIN DECREASED [None]
  - HEPATIC FUNCTION ABNORMAL [None]
  - LIVER DISORDER [None]
  - LYMPHOCYTE PERCENTAGE DECREASED [None]
  - MONOCYTE PERCENTAGE INCREASED [None]
  - NEUTROPHIL PERCENTAGE INCREASED [None]
  - OCULOMUCOCUTANEOUS SYNDROME [None]
  - OESOPHAGEAL CANDIDIASIS [None]
  - PYREXIA [None]
  - RASH [None]
  - RED BLOOD CELL COUNT DECREASED [None]
  - RHABDOMYOLYSIS [None]
  - STEVENS-JOHNSON SYNDROME [None]
  - WHITE BLOOD CELL COUNT DECREASED [None]
